FAERS Safety Report 5567058-8 (Version None)
Quarter: 2007Q4

REPORT INFORMATION
  Report Type: 
  Country: None (occurrence: None)
  Receive Date: 20071219
  Receipt Date: 20071207
  Transmission Date: 20080405
  Serious: Yes (Hospitalization)
  Sender: FDA-Public Use
  Company Number: US-ROCHE-531735

PATIENT
  Age: 71 Year
  Sex: Female
  Weight: 56.7 kg

DRUGS (12)
  1. BONIVA [Suspect]
     Indication: OSTEOPENIA
     Route: 048
     Dates: start: 20050101, end: 20070801
  2. CHOLESTYRAMINE [Concomitant]
  3. OMEPRAZOLE [Concomitant]
     Dates: start: 19920101
  4. LEVOTHYROXINE SODIUM [Concomitant]
  5. TOPROL-XL [Concomitant]
  6. XANAX [Concomitant]
  7. AMBIEN [Concomitant]
  8. PREMARIN [Concomitant]
     Dosage: REPORTED AS 'PREMARIN VAGINAL CREAM'
     Route: 067
  9. FLONASE [Concomitant]
     Dosage: REPORTED AS 'FLONASE NASAL SPRAY'
     Route: 045
  10. MULTI-VITAMINS [Concomitant]
     Dosage: REPORTED AS 'VITAMINS'
  11. SIMVASTATIN [Concomitant]
     Dates: end: 20070601
  12. CALCIUM NOS [Concomitant]
     Indication: OSTEOPENIA
     Route: 048

REACTIONS (4)
  - DYSPHAGIA [None]
  - FALL [None]
  - HIP FRACTURE [None]
  - MYALGIA [None]
